FAERS Safety Report 7574697-1 (Version None)
Quarter: 2011Q2

REPORT INFORMATION
  Report Type: 
  Country: None (occurrence: None)
  Receive Date: 20110627
  Receipt Date: 20110621
  Transmission Date: 20111010
  Serious: No
  Sender: FDA-Public Use
  Company Number: US-PFIZER INC-2011123702

PATIENT
  Sex: Female

DRUGS (1)
  1. ALPRAZOLAM [Suspect]
     Dosage: 0.5 MG, UNK
     Dates: start: 20010301, end: 20110301

REACTIONS (4)
  - DRUG DISPENSING ERROR [None]
  - WITHDRAWAL SYNDROME [None]
  - DEPRESSION [None]
  - ANXIETY [None]
